FAERS Safety Report 11120406 (Version 8)
Quarter: 2017Q2

REPORT INFORMATION
  Report Type: Report from Study
  Country: US (occurrence: US)
  Receive Date: 20150518
  Receipt Date: 20170626
  Transmission Date: 20170829
  Serious: Yes (Hospitalization, Other)
  Sender: FDA-Public Use
  Company Number: US-ARIAD PHARMACEUTICALS, INC-2014US004021

PATIENT
  Sex: Female
  Weight: 107 kg

DRUGS (15)
  1. OXYCODONE [Concomitant]
     Active Substance: OXYCODONE
     Indication: PRODUCT USED FOR UNKNOWN INDICATION
  2. ZOFRAN [Concomitant]
     Active Substance: ONDANSETRON HYDROCHLORIDE
     Indication: PRODUCT USED FOR UNKNOWN INDICATION
  3. ICLUSIG [Suspect]
     Active Substance: PONATINIB
     Indication: CHRONIC MYELOID LEUKAEMIA
     Dosage: 45 MG, QD
     Route: 048
     Dates: start: 20141022
  4. SIMVASTATIN. [Concomitant]
     Active Substance: SIMVASTATIN
     Indication: PRODUCT USED FOR UNKNOWN INDICATION
  5. ASPIRIN. [Concomitant]
     Active Substance: ASPIRIN
     Indication: PRODUCT USED FOR UNKNOWN INDICATION
  6. ICLUSIG [Suspect]
     Active Substance: PONATINIB
     Dosage: 45 MG, QD
     Route: 048
  7. APIDRA [Concomitant]
     Active Substance: INSULIN GLULISINE
     Indication: PRODUCT USED FOR UNKNOWN INDICATION
  8. BACLOFEN. [Concomitant]
     Active Substance: BACLOFEN
     Indication: PRODUCT USED FOR UNKNOWN INDICATION
  9. INSULIN GLARGINE [Concomitant]
     Active Substance: INSULIN GLARGINE
     Indication: PRODUCT USED FOR UNKNOWN INDICATION
  10. TOFRANIL [Concomitant]
     Active Substance: IMIPRAMINE HYDROCHLORIDE
     Indication: PRODUCT USED FOR UNKNOWN INDICATION
  11. ZANTAC [Concomitant]
     Active Substance: RANITIDINE HYDROCHLORIDE
     Indication: PRODUCT USED FOR UNKNOWN INDICATION
  12. LISINOPRIL. [Concomitant]
     Active Substance: LISINOPRIL
     Indication: PRODUCT USED FOR UNKNOWN INDICATION
  13. LASIX [Concomitant]
     Active Substance: FUROSEMIDE
     Indication: PRODUCT USED FOR UNKNOWN INDICATION
  14. ICLUSIG [Suspect]
     Active Substance: PONATINIB
     Dosage: 45 MG, QD
     Route: 048
     Dates: start: 20141022
  15. METFORMIN [Concomitant]
     Active Substance: METFORMIN HYDROCHLORIDE
     Indication: PRODUCT USED FOR UNKNOWN INDICATION

REACTIONS (38)
  - Hyperkeratosis [Unknown]
  - Small intestinal obstruction [Unknown]
  - Gastrointestinal melanosis [Unknown]
  - Dry skin [Not Recovered/Not Resolved]
  - Skin papilloma [Not Recovered/Not Resolved]
  - Sebaceous hyperplasia [Unknown]
  - Seborrhoeic keratosis [Unknown]
  - Fall [Unknown]
  - Syncope [Unknown]
  - Hypothyroidism [Unknown]
  - Gout [Unknown]
  - Pericardial effusion [Unknown]
  - Spinal osteoarthritis [Unknown]
  - Pain in extremity [Recovered/Resolved]
  - Skin cancer [Unknown]
  - Foot operation [Unknown]
  - Foot fracture [Unknown]
  - Dermatitis psoriasiform [Unknown]
  - Joint arthroplasty [Unknown]
  - Vertigo positional [Unknown]
  - Hand fracture [Unknown]
  - Myalgia [Recovered/Resolved]
  - Supraventricular tachycardia [Unknown]
  - Migraine [Unknown]
  - Intervertebral disc protrusion [Unknown]
  - Lumbar spinal stenosis [Unknown]
  - Pruritus [Unknown]
  - Cardiac disorder [Unknown]
  - Dizziness [Unknown]
  - Peptic ulcer [Unknown]
  - Laryngitis [Unknown]
  - Blood pressure increased [Recovered/Resolved]
  - Cellulitis [Unknown]
  - Extrasystoles [Unknown]
  - Drug eruption [Unknown]
  - Acrochordon [Not Recovered/Not Resolved]
  - Chest pain [Unknown]
  - Rash [Unknown]
